FAERS Safety Report 5008911-3 (Version None)
Quarter: 2006Q2

REPORT INFORMATION
  Report Type: 
  Country: None (occurrence: None)
  Receive Date: 20060404
  Receipt Date: 20051103
  Transmission Date: 20061013
  Serious: No
  Sender: FDA-Public Use
  Company Number: USA0511112658

PATIENT
  Age: 35 Year
  Sex: Female
  Weight: 63.6 kg

DRUGS (4)
  1. CYMBALTA [Suspect]
     Indication: PAIN
     Dosage: 30 MG, ORAL
     Route: 048
     Dates: start: 20051028, end: 20051101
  2. SOMA [Concomitant]
  3. KADIAN [Concomitant]
  4. IBUPROFEN [Concomitant]

REACTIONS (4)
  - ANOREXIA [None]
  - CRYING [None]
  - MANIA [None]
  - PARANOIA [None]
